FAERS Safety Report 7049398-9 (Version None)
Quarter: 2010Q4

REPORT INFORMATION
  Report Type: 
  Country: None (occurrence: None)
  Receive Date: 20101012
  Receipt Date: 20101008
  Transmission Date: 20110411
  Serious: Yes (Other)
  Sender: FDA-Public Use
  Company Number: OSCN-NO-1008L-0209

PATIENT
  Age: 22 Year
  Sex: Male
  Weight: 52 kg

DRUGS (3)
  1. OMNISCAN [Suspect]
     Indication: CONVULSION
     Dosage: 13 ML, SINGLE DOSE, I.V.
     Route: 042
  2. ANTIBIOTICS UNSPECIFIED [Concomitant]
  3. ANTIEPILEPTICS UNSPECIFIED [Concomitant]

REACTIONS (3)
  - BONE DISORDER [None]
  - METAPLASIA [None]
  - NEPHROGENIC SYSTEMIC FIBROSIS [None]
